FAERS Safety Report 8574063-6 (Version None)
Quarter: 2012Q3

REPORT INFORMATION
  Report Type: 
  Country: None (occurrence: None)
  Receive Date: 20120806
  Receipt Date: 20120713
  Transmission Date: 20120928
  Serious: No
  Sender: FDA-Public Use
  Company Number: US-ASTRAZENECA-2012SE48899

PATIENT
  Age: 83 Year
  Sex: Male
  Weight: 85.3 kg

DRUGS (11)
  1. HYDROCHLOROTHIAZIDE [Concomitant]
  2. CHOLESTEROL [Concomitant]
  3. ASPIRIN [Concomitant]
  4. BLOOD PRESSURE [Concomitant]
  5. STOOL SOFTENER [Concomitant]
  6. TRICOR [Concomitant]
  7. PRINIVIL [Concomitant]
  8. SYNTHROID [Concomitant]
  9. TOPROL-XL [Suspect]
     Route: 048
  10. LIPITOR [Concomitant]
  11. NEXIUM [Suspect]
     Indication: GASTROOESOPHAGEAL REFLUX DISEASE
     Route: 048
     Dates: start: 20000101

REACTIONS (7)
  - BODY HEIGHT DECREASED [None]
  - ERUCTATION [None]
  - GASTROOESOPHAGEAL REFLUX DISEASE [None]
  - DYSPEPSIA [None]
  - GASTRIC ULCER [None]
  - HELICOBACTER GASTRITIS [None]
  - DRUG INEFFECTIVE [None]
